FAERS Safety Report 7441089-5 (Version None)
Quarter: 2011Q2

REPORT INFORMATION
  Report Type: 
  Country: None (occurrence: None)
  Receive Date: 20110427
  Receipt Date: 20110426
  Transmission Date: 20111010
  Serious: Yes (Death)
  Sender: FDA-Public Use
  Company Number: DE-CEPHALON-2011002052

PATIENT
  Age: 73 Year
  Sex: Male

DRUGS (1)
  1. FENTANYL CITRATE [Suspect]
     Route: 002

REACTIONS (1)
  - NEOPLASM PROGRESSION [None]
